FAERS Safety Report 19920361 (Version 2)
Quarter: 2021Q4

REPORT INFORMATION
  Report Type: Spontaneous
  Country: IN (occurrence: IN)
  Receive Date: 20211005
  Receipt Date: 20211008
  Transmission Date: 20220303
  Serious: No
  Sender: FDA-Public Use
  Company Number: IN-PFIZER INC-202101303100

PATIENT
  Age: 49 Year
  Sex: Male

DRUGS (1)
  1. MEROPENEM [Suspect]
     Active Substance: MEROPENEM
     Indication: Burkholderia pseudomallei infection
     Dosage: UNK
     Route: 051

REACTIONS (1)
  - Off label use [Unknown]
